FAERS Safety Report 9177010 (Version 1)
Quarter: 2013Q1

REPORT INFORMATION
  Report Type: Spontaneous
  Country: US (occurrence: None)
  Receive Date: 20130320
  Receipt Date: 20130320
  Transmission Date: 20140127
  Serious: Yes (Other)
  Sender: FDA-Public Use
  Company Number: None

PATIENT
  Age: 49 Year
  Sex: Female
  Weight: 77.57 kg

DRUGS (1)
  1. CIPROFLOXACIN [Suspect]
     Indication: BACTERIAL INFECTION
     Route: 060
     Dates: start: 20121113, end: 20121116

REACTIONS (22)
  - Rash [None]
  - Rash [None]
  - Vomiting [None]
  - Nausea [None]
  - Diarrhoea [None]
  - Anxiety [None]
  - Panic attack [None]
  - Palpitations [None]
  - Vision blurred [None]
  - Influenza [None]
  - Fatigue [None]
  - Pain in extremity [None]
  - Gait disturbance [None]
  - Impaired driving ability [None]
  - Vitamin D decreased [None]
  - Heart rate increased [None]
  - Night sweats [None]
  - Nervousness [None]
  - Sleep disorder [None]
  - Drug ineffective [None]
  - Rheumatoid arthritis [None]
  - Weight decreased [None]
